FAERS Safety Report 11215528 (Version 1)
Quarter: 2015Q2

REPORT INFORMATION
  Report Type: Spontaneous
  Country: FR (occurrence: FR)
  Receive Date: 20150624
  Receipt Date: 20150624
  Transmission Date: 20150821
  Serious: Yes (Other)
  Sender: FDA-Public Use
  Company Number: FR-PFIZER INC-2015206445

PATIENT
  Age: 92 Year
  Sex: Male

DRUGS (1)
  1. CORDARONE [Suspect]
     Active Substance: AMIODARONE HYDROCHLORIDE
     Indication: ARRHYTHMIA
     Dosage: UNK
     Route: 048
     Dates: end: 2005

REACTIONS (1)
  - Axonal neuropathy [Recovering/Resolving]
